FAERS Safety Report 7094390-1 (Version None)
Quarter: 2010Q4

REPORT INFORMATION
  Report Type: 
  Country: None (occurrence: None)
  Receive Date: 20101110
  Receipt Date: 20101105
  Transmission Date: 20110411
  Serious: Yes (Hospitalization)
  Sender: FDA-Public Use
  Company Number: FR-PFIZER INC-2010141393

PATIENT
  Age: 5 Year
  Sex: Male

DRUGS (11)
  1. SOMATROPIN [Suspect]
     Indication: RENAL FAILURE
     Dosage: 0.9 MG, 1X/DAY
     Dates: start: 20070406
  2. SPECIAFOLDINE [Concomitant]
     Dosage: 1 DF, 1X/DAY
     Dates: start: 20061226, end: 20070725
  3. UN-ALFA [Concomitant]
     Dosage: 0.5 UG, UNK
     Dates: start: 20061206, end: 20070725
  4. CHRONADALATE [Concomitant]
     Dosage: 30 MG, 1X/DAY
     Dates: start: 20070109, end: 20070725
  5. EPOETIN BETA [Concomitant]
     Dosage: 1500 IU, UNK
     Dates: start: 20070321, end: 20070725
  6. ENALAPRIL MALEATE [Concomitant]
     Dosage: 10 MG, 1X/DAY
     Dates: start: 20061206, end: 20070725
  7. LASIX [Concomitant]
     Dosage: 0.8 ML, 2X/DAY
     Dates: start: 20061206, end: 20070725
  8. CALCIDOSE [Concomitant]
     Dosage: 1 G, 3X/DAY
     Dates: start: 20061206, end: 20070725
  9. BECOZYME [Concomitant]
     Dosage: 1 DF, 1X/DAY
     Dates: start: 20061206, end: 20070725
  10. KAYEXALATE [Concomitant]
     Dosage: 0.5
     Dates: start: 20061206, end: 20070725
  11. DUPHALAC [Concomitant]
     Dosage: 1
     Dates: start: 20070109, end: 20070725

REACTIONS (1)
  - PERITONITIS [None]
